FAERS Safety Report 8438354-1 (Version None)
Quarter: 2012Q2

REPORT INFORMATION
  Report Type: 
  Country: None (occurrence: None)
  Receive Date: 20120614
  Receipt Date: 20120611
  Transmission Date: 20120825
  Serious: Yes (Other)
  Sender: FDA-Public Use
  Company Number: DE-GILEAD-2012-0056437

PATIENT
  Age: 23 Year
  Sex: Male

DRUGS (5)
  1. VISTIDE [Suspect]
     Dosage: 5 MG/KG, Q2WK
  2. VISTIDE [Suspect]
     Indication: SKIN PAPILLOMA
     Dosage: 5 MG/KG, Q1WK
     Route: 042
  3. ASPIRIN [Concomitant]
     Indication: SKIN PAPILLOMA
  4. FLUOROURACIL [Concomitant]
     Indication: SKIN PAPILLOMA
  5. PROBENECID [Concomitant]
     Indication: SKIN PAPILLOMA

REACTIONS (1)
  - DRUG INEFFECTIVE FOR UNAPPROVED INDICATION [None]
